FAERS Safety Report 24763367 (Version 2)
Quarter: 2025Q1

REPORT INFORMATION
  Report Type: Spontaneous
  Country: US (occurrence: US)
  Receive Date: 20241222
  Receipt Date: 20250219
  Transmission Date: 20250409
  Serious: Yes (Life-Threatening)
  Sender: NOVARTIS
  Company Number: US-002147023-NVSC2024US241913

PATIENT
  Sex: Female
  Weight: 108.41 kg

DRUGS (1)
  1. COSENTYX [Suspect]
     Active Substance: SECUKINUMAB
     Indication: Hidradenitis
     Dosage: 300 MG, BIW (ONCE EVERY TWO WEEKS)
     Route: 058

REACTIONS (5)
  - Feeling abnormal [Unknown]
  - Genital burning sensation [Unknown]
  - Dysuria [Unknown]
  - Pollakiuria [Unknown]
  - Condition aggravated [Unknown]
